FAERS Safety Report 18708686 (Version 1)
Quarter: 2021Q1

REPORT INFORMATION
  Report Type: Spontaneous
  Country: GB (occurrence: GB)
  Receive Date: 20210106
  Receipt Date: 20210106
  Transmission Date: 20210419
  Serious: Yes (Other)
  Sender: FDA-Public Use
  Company Number: GB-TEVA-2020-GB-1864859

PATIENT
  Age: 64 Year
  Sex: Female
  Weight: 97 kg

DRUGS (11)
  1. PREGABALIN. [Concomitant]
     Active Substance: PREGABALIN
     Dosage: 2 DOSAGE FORMS ,TO REDUCE AND STOP
     Dates: start: 20200302, end: 20201006
  2. PREDNISOLONE. [Concomitant]
     Active Substance: PREDNISOLONE
     Dosage: 6 DOSAGE FORMS DAILY; IN THE MORNING FOR 7 DAYS.
     Dates: start: 20200302, end: 20200309
  3. BRALTUS [Concomitant]
     Active Substance: TIOTROPIUM BROMIDE
     Indication: CHRONIC OBSTRUCTIVE PULMONARY DISEASE
     Dosage: 1 DOSAGE FORMS ,(BRALTUS IS T...
     Route: 055
     Dates: start: 20200302
  4. DOXYCYCLINE. [Concomitant]
     Active Substance: DOXYCYCLINE
     Dosage: 1 TABLET TWICE DAILY ON DAY 1. THEREAFTER ONE T...
     Dates: start: 20200302
  5. FLUOXETINE [Suspect]
     Active Substance: FLUOXETINE HYDROCHLORIDE
     Dosage: 20 MG
     Dates: start: 20201006, end: 20201201
  6. AMOXICILLIN. [Concomitant]
     Active Substance: AMOXICILLIN
     Dosage: 3 DOSAGE FORMS ,FOR 7 DAYS
     Dates: start: 20201117, end: 20201124
  7. BUDESONIDE. [Concomitant]
     Active Substance: BUDESONIDE
     Dosage: 4 DOSAGE FORMS ,PUFFS
     Dates: start: 20200302
  8. SALBUTAMOL [Concomitant]
     Active Substance: ALBUTEROL
     Dosage: 2 DOSAGE FORMS ,PUFFS
     Dates: start: 20200302
  9. ATORVASTATIN [Concomitant]
     Active Substance: ATORVASTATIN
     Dosage: 1 DOSAGE FORMS DAILY; IN THE EVENING
     Dates: start: 20200302
  10. CARBOCISTEINE [Concomitant]
     Active Substance: CARBOCYSTEINE
     Dosage: 3 TABLETS TWICE DAILY, REDUCE TO 2 TWICE DAILY ...
     Dates: start: 20200302
  11. CLOPIDOGREL [Concomitant]
     Active Substance: CLOPIDOGREL BISULFATE
     Dosage: 1 DOSAGE FORMS
     Dates: start: 20200302

REACTIONS (1)
  - Burning sensation [Recovered/Resolved]

NARRATIVE: CASE EVENT DATE: 20201210
